FAERS Safety Report 6330418-1 (Version None)
Quarter: 2009Q3

REPORT INFORMATION
  Report Type: 
  Country: None (occurrence: None)
  Receive Date: 20090826
  Receipt Date: 20090826
  Transmission Date: 20100115
  Serious: Yes (Other)
  Sender: FDA-Public Use
  Company Number: None

PATIENT
  Age: 30 Year
  Sex: Female
  Weight: 146.0582 kg

DRUGS (1)
  1. BISACODYL EC TAB 5 MG EC MAJOR [Suspect]
     Indication: COLONOSCOPY
     Dosage: 4 TABS ONCE PO
     Route: 048
     Dates: start: 20090825, end: 20090825

REACTIONS (7)
  - ABDOMINAL PAIN UPPER [None]
  - CHILLS [None]
  - HYPERHIDROSIS [None]
  - NAUSEA [None]
  - PILOERECTION [None]
  - SYNCOPE [None]
  - TREMOR [None]
